FAERS Safety Report 8193318-0 (Version None)
Quarter: 2012Q1

REPORT INFORMATION
  Report Type: 
  Country: None (occurrence: None)
  Receive Date: 20120308
  Receipt Date: 20111012
  Transmission Date: 20120608
  Serious: Yes (Other)
  Sender: FDA-Public Use
  Company Number: MA-ROXANE LABORATORIES, INC.-2011-DE-05615GD

PATIENT
  Age: 22 Year
  Sex: Female

DRUGS (1)
  1. PREDNISONE TAB [Suspect]
     Indication: PYODERMA GANGRENOSUM
     Dosage: 2 MG/KG
     Route: 051

REACTIONS (2)
  - SUICIDE ATTEMPT [None]
  - DEPRESSION [None]
